FAERS Safety Report 9224848 (Version 1)
Quarter: 2013Q2

REPORT INFORMATION
  Report Type: Spontaneous
  Country: US (occurrence: None)
  Receive Date: 20130409
  Receipt Date: 20130409
  Transmission Date: 20140414
  Serious: Yes (Other)
  Sender: FDA-Public Use
  Company Number: 2013P1003500

PATIENT
  Age: 48 Year
  Sex: Male

DRUGS (2)
  1. INFUMORPH [Suspect]
     Indication: PAIN
     Dates: start: 201302
  2. INFUMORPH [Suspect]
     Indication: POST LAMINECTOMY SYNDROME
     Dates: start: 201302

REACTIONS (5)
  - Device malfunction [None]
  - Pain [None]
  - Drug dose omission [None]
  - Drug ineffective [None]
  - Influenza [None]
